FAERS Safety Report 5115312-6 (Version None)
Quarter: 2006Q3

REPORT INFORMATION
  Report Type: 
  Country: None (occurrence: None)
  Receive Date: 20060920
  Receipt Date: 20060911
  Transmission Date: 20061208
  Serious: Yes (Hospitalization)
  Sender: FDA-Public Use
  Company Number: FRWYE888411SEP06

PATIENT
  Age: 53 Year
  Sex: Male

DRUGS (18)
  1. EFFEXOR XR [Suspect]
     Indication: DEPRESSION
     Dosage: SEE IMAGE, ORAL
     Route: 048
     Dates: start: 20060115, end: 20060412
  2. EFFEXOR XR [Suspect]
     Indication: PERSONALITY DISORDER
     Dosage: SEE IMAGE, ORAL
     Route: 048
     Dates: start: 20060115, end: 20060412
  3. EFFEXOR XR [Suspect]
     Indication: DEPRESSION
     Dosage: SEE IMAGE, ORAL
     Route: 048
     Dates: start: 20060515, end: 20060705
  4. EFFEXOR XR [Suspect]
     Indication: PERSONALITY DISORDER
     Dosage: SEE IMAGE, ORAL
     Route: 048
     Dates: start: 20060515, end: 20060705
  5. EFFEXOR XR [Suspect]
     Indication: DEPRESSION
     Dosage: SEE IMAGE, ORAL
     Route: 048
     Dates: start: 20060715, end: 20060808
  6. EFFEXOR XR [Suspect]
     Indication: PERSONALITY DISORDER
     Dosage: SEE IMAGE, ORAL
     Route: 048
     Dates: start: 20060715, end: 20060808
  7. EFFEXOR XR [Suspect]
     Indication: DEPRESSION
     Dosage: SEE IMAGE, ORAL
     Route: 048
     Dates: start: 20060809, end: 20060810
  8. EFFEXOR XR [Suspect]
     Indication: PERSONALITY DISORDER
     Dosage: SEE IMAGE, ORAL
     Route: 048
     Dates: start: 20060809, end: 20060810
  9. INSULIN DETEMIR (INSULIN DETEMIR, , 0) [Suspect]
     Indication: DIABETES MELLITUS INSULIN-DEPENDENT
     Dates: start: 20020101, end: 20060705
  10. INSULIN DETEMIR (INSULIN DETEMIR, , 0) [Suspect]
     Indication: DIABETES MELLITUS INSULIN-DEPENDENT
     Dates: start: 20060715
  11. NOVORAPID (INSULIN ASPART, , 0) [Suspect]
     Indication: DIABETES MELLITUS INSULIN-DEPENDENT
     Dates: end: 20060705
  12. NOVORAPID (INSULIN ASPART, , 0) [Suspect]
     Indication: DIABETES MELLITUS INSULIN-DEPENDENT
     Dates: start: 20060715
  13. RISPERDAL [Concomitant]
  14. ZOCOR [Concomitant]
  15. HALDOL [Concomitant]
  16. TERCIAN (CYAMEMAZINE) [Concomitant]
  17. DIHYDROERGOTAMINE MESYLATE [Concomitant]
  18. IMOVANE (ZOPICLONE) [Concomitant]

REACTIONS (6)
  - AGITATION [None]
  - BLOOD URIC ACID DECREASED [None]
  - CONVULSION [None]
  - HYPOGLYCAEMIC COMA [None]
  - INAPPROPRIATE ANTIDIURETIC HORMONE SECRETION [None]
  - OVERDOSE [None]
